FAERS Safety Report 4647516-0 (Version None)
Quarter: 2005Q2

REPORT INFORMATION
  Report Type: 
  Country: None (occurrence: None)
  Receive Date: 20050428
  Receipt Date: 20050329
  Transmission Date: 20051028
  Serious: Yes (Life-Threatening, Hospitalization)
  Sender: FDA-Public Use
  Company Number: JP-ROCHE-400742

PATIENT
  Age: 1 Year
  Sex: Female

DRUGS (4)
  1. TAMIFLU [Suspect]
     Route: 048
     Dates: start: 20050328, end: 20050328
  2. TAMIFLU [Suspect]
     Route: 048
     Dates: start: 20050329, end: 20050401
  3. PERIACTIN [Concomitant]
     Route: 048
     Dates: start: 20050329, end: 20050405
  4. ANHIBA [Concomitant]
     Route: 054
     Dates: start: 20050328, end: 20050329

REACTIONS (3)
  - CONVULSION [None]
  - GRAND MAL CONVULSION [None]
  - LEUKOENCEPHALOMYELITIS [None]
